FAERS Safety Report 6237517-3 (Version None)
Quarter: 2009Q2

REPORT INFORMATION
  Report Type: 
  Country: None (occurrence: None)
  Receive Date: 20090619
  Receipt Date: 20090605
  Transmission Date: 20091009
  Serious: Yes (Other)
  Sender: FDA-Public Use
  Company Number: DE-GENENTECH-283968

PATIENT
  Sex: Female

DRUGS (3)
  1. HERCEPTIN [Suspect]
     Indication: BREAST CANCER
     Dosage: 170 MG, 1/WEEK
     Route: 042
     Dates: start: 20090324, end: 20090505
  2. DOCETAXEL [Suspect]
     Indication: BREAST CANCER
     Dosage: 165 MG, 1/WEEK
     Route: 042
     Dates: start: 20090325, end: 20090505
  3. DEXAMETHASONE [Concomitant]
     Indication: DRUG USE FOR UNKNOWN INDICATION
     Dosage: UNK
     Dates: start: 20090324, end: 20090505

REACTIONS (1)
  - PHOTODERMATOSIS [None]
